FAERS Safety Report 5045010-9 (Version None)
Quarter: 2006Q3

REPORT INFORMATION
  Report Type: 
  Country: None (occurrence: None)
  Receive Date: 20060705
  Receipt Date: 20060613
  Transmission Date: 20061208
  Serious: Yes (Hospitalization)
  Sender: FDA-Public Use
  Company Number: US200606003423

PATIENT
  Age: 87 Year
  Sex: Female

DRUGS (3)
  1. FORTEO [Suspect]
     Indication: OSTEOPOROSIS
     Dates: start: 20060106
  2. FORTEO [Concomitant]
  3. FORTEO [Concomitant]

REACTIONS (2)
  - DEVICE RELATED INFECTION [None]
  - PHARMACEUTICAL PRODUCT COMPLAINT [None]
